FAERS Safety Report 21586468 (Version 1)
Quarter: 2022Q4

REPORT INFORMATION
  Report Type: Spontaneous
  Country: BR (occurrence: BR)
  Receive Date: 20221112
  Receipt Date: 20221112
  Transmission Date: 20230113
  Serious: Yes (Other)
  Sender: FDA-Public Use
  Company Number: BR-TAKEDA-2022TUS083611

PATIENT
  Sex: Female
  Weight: 62 kg

DRUGS (2)
  1. LISDEXAMFETAMINE DIMESYLATE [Suspect]
     Active Substance: LISDEXAMFETAMINE DIMESYLATE
     Indication: Attention deficit hyperactivity disorder
     Dosage: UNK UNK, QD
     Route: 065
  2. LISDEXAMFETAMINE DIMESYLATE [Suspect]
     Active Substance: LISDEXAMFETAMINE DIMESYLATE
     Dosage: UNK
     Route: 065

REACTIONS (7)
  - Hyperthyroidism [Unknown]
  - Drug abuser [Unknown]
  - Persistent depressive disorder [Unknown]
  - Memory impairment [Unknown]
  - Therapeutic product effect decreased [Unknown]
  - Therapeutic product effect variable [Unknown]
  - Product use issue [Unknown]
